FAERS Safety Report 4976281-2 (Version None)
Quarter: 2006Q2

REPORT INFORMATION
  Report Type: 
  Country: None (occurrence: None)
  Receive Date: 20060412
  Receipt Date: 20060328
  Transmission Date: 20061013
  Serious: Yes (Hospitalization)
  Sender: FDA-Public Use
  Company Number: 2006P1000179

PATIENT
  Age: 71 Year
  Sex: Male
  Weight: 71 kg

DRUGS (3)
  1. RETEPLASE                  (RETEPLASE) [Suspect]
     Indication: ACUTE MYOCARDIAL INFARCTION
     Dosage: 5  IU; X1; IVB
     Route: 040
     Dates: start: 20050725, end: 20050725
  2. REOPRO [Suspect]
     Indication: ACUTE MYOCARDIAL INFARCTION
     Dosage: SEE IMAGE, IVB
     Route: 040
     Dates: start: 20050725, end: 20050725
  3. HEPARIN [Concomitant]

REACTIONS (1)
  - CORONARY ARTERY OCCLUSION [None]
